FAERS Safety Report 8633295 (Version 5)
Quarter: 2012Q4

REPORT INFORMATION
  Report Type: 
  Country: JP (occurrence: JP)
  Receive Date: 20120625
  Receipt Date: 20120907
  Transmission Date: 20130627
  Serious: Yes (Hospitalization)
  Sender: FDA-Public Use
  Company Number: JP-PFIZER INC-2012125163

PATIENT
  Age: 71 Year
  Sex: Male
  Weight: 59 kg

DRUGS (8)
  1. AXITINIB [Suspect]
     Indication: METASTATIC RENAL CELL CARCINOMA
     Dosage: 5 mg, 2x/day
     Route: 048
     Dates: start: 20100803
  2. AXITINIB [Suspect]
     Dosage: 7 mg, 2x/day
     Route: 048
     Dates: start: 20100827
  3. AXITINIB [Suspect]
     Dosage: 5 mg, 2x/day
     Route: 048
     Dates: start: 20101224
  4. AXITINIB [Suspect]
     Dosage: 3 mg, 2x/day
     Route: 048
     Dates: start: 20111018
  5. AXITINIB [Suspect]
     Dosage: 2 mg, 2x/day
     Route: 048
     Dates: start: 20120410, end: 20120520
  6. THYRADIN [Suspect]
     Indication: HYPOTHYROIDISM
     Dosage: 50 ug, 1x/day
     Route: 048
     Dates: start: 20101026, end: 20120522
  7. BIOFERMIN R [Suspect]
     Indication: DIARRHOEA
     Dosage: 1 g, 3x/day
     Route: 048
     Dates: start: 20110607, end: 20120522
  8. BIOFERMIN R [Suspect]
     Indication: PROPHYLAXIS AGAINST DIARRHOEA

REACTIONS (1)
  - Diverticulum intestinal haemorrhagic [Recovered/Resolved]
